FAERS Safety Report 9993590 (Version 1)
Quarter: 2014Q1

REPORT INFORMATION
  Report Type: Spontaneous
  Country: DE (occurrence: DE)
  Receive Date: 20140310
  Receipt Date: 20140310
  Transmission Date: 20141002
  Serious: Yes (Other)
  Sender: FDA-Public Use
  Company Number: PHHY2014DE028553

PATIENT
  Age: 79 Year
  Sex: Female

DRUGS (3)
  1. ESTRAGEST TTS [Suspect]
     Indication: OSTEOPOROSIS
     Dosage: UNK UKN, UNK
     Route: 062
     Dates: start: 1999, end: 201310
  2. ESTRAGEST TTS [Suspect]
     Indication: BLADDER DISORDER
  3. ESTRAGEST TTS [Suspect]
     Indication: OFF LABEL USE

REACTIONS (4)
  - Cardiac failure [Unknown]
  - Carotid arteriosclerosis [Unknown]
  - Otosclerosis [Unknown]
  - Tinnitus [Unknown]
